FAERS Safety Report 14285206 (Version 12)
Quarter: 2018Q2

REPORT INFORMATION
  Report Type: Spontaneous
  Country: DK (occurrence: DK)
  Receive Date: 20171214
  Receipt Date: 20180615
  Transmission Date: 20180711
  Serious: Yes (Hospitalization, Other)
  Sender: FDA-Public Use
  Company Number: DK-CONCORDIA PHARMACEUTICALS INC.-E2B_00008800

PATIENT
  Age: 73 Year
  Sex: Male

DRUGS (2)
  1. MAXIDEX [Suspect]
     Active Substance: DEXAMETHASONE
     Indication: IRIDOCYCLITIS
     Dosage: 6 DROPS / DAY TO START AND THEN WITHDRAWAL WITH A DROP / DAY.
     Route: 050
     Dates: start: 20170119, end: 20170223
  2. PREDNISOLONE. [Suspect]
     Active Substance: PREDNISOLONE
     Indication: IRIDOCYCLITIS
     Dosage: 1 DF, QHS FOR THE NIGHT IN THE RIGHT EYE
     Route: 050
     Dates: start: 20170119, end: 20170223

REACTIONS (5)
  - Corneal transplant [Recovered/Resolved]
  - Keratitis [Unknown]
  - Photopsia [Recovered/Resolved]
  - Corneal lesion [Recovered/Resolved]
  - Blindness [Recovering/Resolving]

NARRATIVE: CASE EVENT DATE: 201702
